FAERS Safety Report 8694577 (Version 4)
Quarter: 2012Q4

REPORT INFORMATION
  Report Type: 
  Country: US (occurrence: US)
  Receive Date: 20120731
  Receipt Date: 20121113
  Transmission Date: 20130627
  Serious: No
  Sender: FDA-Public Use
  Company Number: US-009507513-2012SP016398

PATIENT
  Sex: Female
  Weight: 54.43 kg

DRUGS (1)
  1. IMPLANON [Suspect]
     Indication: CONTRACEPTION
     Dosage: 1 DF, UNK
     Route: 059
     Dates: start: 20090429

REACTIONS (3)
  - Implant site scar [Unknown]
  - Device difficult to use [Unknown]
  - Medical device complication [Unknown]
